FAERS Safety Report 6968204-1 (Version None)
Quarter: 2010Q3

REPORT INFORMATION
  Report Type: 
  Country: None (occurrence: None)
  Receive Date: 20100907
  Receipt Date: 20100831
  Transmission Date: 20110219
  Serious: Yes (Hospitalization)
  Sender: FDA-Public Use
  Company Number: FR-ROCHE-684369

PATIENT
  Sex: Male

DRUGS (9)
  1. RIVOTRIL [Suspect]
     Dosage: STRENGTH:2.5 MG/ML
     Route: 048
     Dates: start: 20091013, end: 20091110
  2. TRIVASTAL [Concomitant]
     Dosage: 1 DOSE
     Route: 048
  3. PREVISCAN [Concomitant]
     Indication: ATRIAL FIBRILLATION
     Dosage: 1.5 TABLETS
     Route: 048
  4. PERINDOPRIL ERBUMINE [Concomitant]
     Route: 048
  5. AMIODARONE [Concomitant]
     Route: 048
  6. KARDEGIC [Concomitant]
     Dosage: FORM:SACHET
     Route: 048
  7. TAHOR [Concomitant]
     Route: 048
  8. KREDEX [Concomitant]
     Route: 048
  9. NITROGLYCERIN [Concomitant]
     Route: 062

REACTIONS (1)
  - ANAEMIA HAEMOLYTIC AUTOIMMUNE [None]
